FAERS Safety Report 7284808-3 (Version None)
Quarter: 2011Q1

REPORT INFORMATION
  Report Type: 
  Country: None (occurrence: None)
  Receive Date: 20110210
  Receipt Date: 20110207
  Transmission Date: 20110831
  Serious: No
  Sender: FDA-Public Use
  Company Number: US-PFIZER INC-2011027555

PATIENT
  Sex: Female

DRUGS (2)
  1. DEXMETHYLPHENIDATE HYDROCHLORIDE [Concomitant]
     Dosage: 10 MG, UNK
  2. GEODON [Suspect]
     Indication: BIPOLAR DISORDER
     Dosage: 80MG CAPSULE AND 20MG CAPSULE
     Route: 048
     Dates: start: 20100701

REACTIONS (2)
  - DYSPHAGIA [None]
  - WRONG TECHNIQUE IN DRUG USAGE PROCESS [None]
